FAERS Safety Report 9060029 (Version 1)
Quarter: 2013Q1

REPORT INFORMATION
  Report Type: Report from Study
  Country: US (occurrence: US)
  Receive Date: 20130212
  Receipt Date: 20130212
  Transmission Date: 20140127
  Serious: Yes (Hospitalization, Disabling, Other)
  Sender: FDA-Public Use
  Company Number: US-US-EMD SERONO, INC.-7192390

PATIENT
  Sex: Male

DRUGS (2)
  1. REBIF [Suspect]
     Indication: MULTIPLE SCLEROSIS
     Route: 058
     Dates: start: 2000
  2. REBIF [Suspect]
     Route: 058
     Dates: start: 20061205

REACTIONS (6)
  - Myocardial infarction [Recovering/Resolving]
  - Coronary artery occlusion [Recovering/Resolving]
  - Atrial fibrillation [Recovering/Resolving]
  - Transient ischaemic attack [Recovering/Resolving]
  - Blood triglycerides increased [Recovering/Resolving]
  - Blindness [Recovering/Resolving]
